FAERS Safety Report 10450588 (Version 1)
Quarter: 2014Q3

REPORT INFORMATION
  Report Type: Spontaneous
  Country: BR (occurrence: BR)
  Receive Date: 20140912
  Receipt Date: 20140912
  Transmission Date: 20150326
  Serious: Yes (Other)
  Sender: FDA-Public Use
  Company Number: BR-ASTRAZENECA-2014SE67663

PATIENT
  Age: 74 Year
  Sex: Male
  Weight: 100 kg

DRUGS (1)
  1. CRESTOR [Suspect]
     Active Substance: ROSUVASTATIN CALCIUM
     Route: 048
     Dates: start: 2009

REACTIONS (1)
  - Venous occlusion [Recovered/Resolved]

NARRATIVE: CASE EVENT DATE: 2014
